FAERS Safety Report 5266585-0 (Version None)
Quarter: 2007Q1

REPORT INFORMATION
  Report Type: 
  Country: None (occurrence: None)
  Receive Date: 20070315
  Receipt Date: 20070306
  Transmission Date: 20070707
  Serious: Yes (Other)
  Sender: FDA-Public Use
  Company Number: DE-PFIZER INC-2006144729

PATIENT
  Age: 72 Year
  Sex: Male

DRUGS (6)
  1. INSPRA [Suspect]
     Indication: CARDIAC FAILURE
     Route: 048
  2. INSULIN HUMAN [Concomitant]
     Route: 058
  3. LANTUS [Concomitant]
     Route: 058
  4. ALDACTONE [Concomitant]
     Dates: end: 20061021
  5. UNAT [Concomitant]
  6. TORSEMIDE [Concomitant]
     Dates: start: 20061027

REACTIONS (2)
  - BLOOD GLUCOSE INCREASED [None]
  - INCREASED INSULIN REQUIREMENT [None]
